FAERS Safety Report 22062355 (Version 1)
Quarter: 2023Q1

REPORT INFORMATION
  Report Type: Report from Study
  Country: US (occurrence: US)
  Receive Date: 20230305
  Receipt Date: 20230305
  Transmission Date: 20230418
  Serious: No
  Sender: FDA-Public Use
  Company Number: US-002147023-NVSC2023US048972

PATIENT
  Sex: Male

DRUGS (1)
  1. NEORAL [Suspect]
     Active Substance: CYCLOSPORINE
     Indication: Renal transplant
     Dosage: 100 MG, BID
     Route: 048

REACTIONS (1)
  - Expired product administered [Unknown]
